FAERS Safety Report 6955921-2 (Version None)
Quarter: 2010Q3

REPORT INFORMATION
  Report Type: 
  Country: None (occurrence: None)
  Receive Date: 20100830
  Receipt Date: 20100819
  Transmission Date: 20110219
  Serious: Yes (Other)
  Sender: FDA-Public Use
  Company Number: US-NAPPMUNDI-USA-2010-0045727

PATIENT
  Sex: Male

DRUGS (8)
  1. OXYCONTIN [Suspect]
     Indication: PAIN
     Dosage: 320 MG, Q12H
     Route: 048
     Dates: start: 20100817
  2. PLAVIX [Concomitant]
     Dosage: 75 MG, UNK
  3. LASIX [Concomitant]
     Dosage: 20 MG, UNK
  4. INDOCIN                            /00003801/ [Concomitant]
     Dosage: 50 MG, UNK
  5. TIAZAC                             /00489702/ [Concomitant]
     Dosage: 240 NG, UNK
  6. ALTACE [Concomitant]
     Dosage: 2.5 MG, UNK
  7. PREVACID [Concomitant]
     Dosage: 30 MG, UNK
  8. ROXICODONE [Concomitant]
     Indication: BREAKTHROUGH PAIN

REACTIONS (9)
  - CHOKING [None]
  - DYSPHAGIA [None]
  - FOREIGN BODY [None]
  - INTENTIONAL DRUG MISUSE [None]
  - OROPHARYNGEAL PAIN [None]
  - PHARYNGEAL HAEMORRHAGE [None]
  - PHARYNGEAL INJURY [None]
  - PRODUCT COATING ISSUE [None]
  - RETCHING [None]
